FAERS Safety Report 10262085 (Version 4)
Quarter: 2014Q3

REPORT INFORMATION
  Report Type: Spontaneous
  Country: US (occurrence: US)
  Receive Date: 20140626
  Receipt Date: 20140923
  Transmission Date: 20150326
  Serious: Yes (Other)
  Sender: FDA-Public Use
  Company Number: US-GLAXOSMITHKLINE-A0710553A

PATIENT
  Age: 84 Year
  Sex: Female

DRUGS (8)
  1. ADVAIR HFA [Suspect]
     Active Substance: FLUTICASONE PROPIONATE\SALMETEROL XINAFOATE
     Indication: CHRONIC OBSTRUCTIVE PULMONARY DISEASE
     Dosage: 1PUFF TWICE PER DAY
     Route: 055
     Dates: start: 200710, end: 20080216
  2. CRESTOR [Concomitant]
     Active Substance: ROSUVASTATIN CALCIUM
  3. CALCIUM [Concomitant]
     Active Substance: CALCIUM
  4. DIURETIC [Concomitant]
     Active Substance: UNSPECIFIED INGREDIENT
  5. THYROID MEDICATION [Concomitant]
     Active Substance: UNSPECIFIED INGREDIENT
  6. SPIRIVA [Concomitant]
     Active Substance: TIOTROPIUM BROMIDE MONOHYDRATE
  7. ADVAIR HFA [Suspect]
     Active Substance: FLUTICASONE PROPIONATE\SALMETEROL XINAFOATE
     Indication: CHRONIC OBSTRUCTIVE PULMONARY DISEASE
     Route: 055
     Dates: start: 200802
  8. NEXIUM [Concomitant]
     Active Substance: ESOMEPRAZOLE MAGNESIUM

REACTIONS (13)
  - Visual acuity reduced [Recovering/Resolving]
  - Hypothyroidism [Recovered/Resolved]
  - Visual impairment [Recovering/Resolving]
  - Oropharyngitis fungal [Recovered/Resolved]
  - Ill-defined disorder [Recovered/Resolved]
  - Dysphonia [Recovered/Resolved]
  - Contusion [Recovering/Resolving]
  - Candida infection [Recovered/Resolved]
  - Laryngitis [Recovered/Resolved]
  - Cough [Recovered/Resolved]
  - Weight increased [Recovered/Resolved]
  - Pain in extremity [Recovering/Resolving]
  - Age-related macular degeneration [Recovering/Resolving]

NARRATIVE: CASE EVENT DATE: 20080501
